FAERS Safety Report 19483509 (Version 4)
Quarter: 2021Q4

REPORT INFORMATION
  Report Type: Spontaneous
  Country: AR (occurrence: AR)
  Receive Date: 20210701
  Receipt Date: 20211006
  Transmission Date: 20220304
  Serious: Yes (Other)
  Sender: FDA-Public Use
  Company Number: AR-PFIZER INC-2021726752

PATIENT
  Age: 52 Year
  Sex: Female

DRUGS (2)
  1. SUTENT [Suspect]
     Active Substance: SUNITINIB MALATE
     Indication: Metastatic renal cell carcinoma
     Dosage: 37.5 MG, CYCLIC (DAILY, SCHEME 2X1) (STRENGTH: 12.5 MG)
     Dates: start: 20180228, end: 202104
  2. SUTENT [Suspect]
     Active Substance: SUNITINIB MALATE
     Dosage: 37.5 MG, CYCLIC (DAILY, SCHEME 2X1) (STRENGTH: 25 MG)
     Dates: start: 20180228, end: 202104

REACTIONS (10)
  - Pancreatic disorder [Unknown]
  - Second primary malignancy [Unknown]
  - Thyroid cancer [Unknown]
  - Diabetes mellitus [Unknown]
  - Blindness [Unknown]
  - Blood pressure abnormal [Unknown]
  - Insomnia [Unknown]
  - Vomiting [Unknown]
  - Nausea [Unknown]
  - Intentional dose omission [Unknown]

NARRATIVE: CASE EVENT DATE: 20210613
